FAERS Safety Report 9271075 (Version 2)
Quarter: 2013Q3

REPORT INFORMATION
  Report Type: Spontaneous
  Country: DE (occurrence: DE)
  Receive Date: 20130506
  Receipt Date: 20130821
  Transmission Date: 20140515
  Serious: Yes (Hospitalization, Other)
  Sender: FDA-Public Use
  Company Number: DE-AMGEN-DEUSP2013031047

PATIENT
  Age: 67 Year
  Sex: Male

DRUGS (4)
  1. ENBREL [Suspect]
     Indication: RHEUMATOID ARTHRITIS
     Dosage: 50 MG, WEEKLY
     Route: 065
     Dates: start: 20120417, end: 20130503
  2. PREDNISOLONE [Concomitant]
     Dosage: 40 MG, UNK
  3. CALCIUM [Concomitant]
     Dosage: 500 UNK, UNK
  4. LOCOL [Concomitant]
     Dosage: 80 MG, UNK

REACTIONS (1)
  - Renal cancer [Not Recovered/Not Resolved]
